FAERS Safety Report 8461937-X (Version None)
Quarter: 2012Q2

REPORT INFORMATION
  Report Type: 
  Country: None (occurrence: None)
  Receive Date: 20120625
  Receipt Date: 20120621
  Transmission Date: 20120825
  Serious: Yes (Other)
  Sender: FDA-Public Use
  Company Number: CA-JNJFOC-20120308588

PATIENT

DRUGS (1)
  1. RISPERDAL CONSTA [Suspect]
     Indication: PRODUCT USED FOR UNKNOWN INDICATION
     Dosage: DOSAGE AND FREQUENCY UNSPECIFIED
     Route: 030

REACTIONS (3)
  - BLOOD DISORDER [None]
  - WEIGHT INCREASED [None]
  - PRODUCT QUALITY ISSUE [None]
